FAERS Safety Report 4309201-4 (Version None)
Quarter: 2004Q1

REPORT INFORMATION
  Report Type: 
  Country: None (occurrence: None)
  Receive Date: 20040301
  Receipt Date: 20040213
  Transmission Date: 20041129
  Serious: Yes (Death)
  Sender: FDA-Public Use
  Company Number: 2004-DE-00725GD

PATIENT
  Age: 15 Year
  Sex: Male

DRUGS (4)
  1. ORCIPRENALINE (ORCIPRENALINE SULFATE) (NR) [Suspect]
     Indication: ATRIOVENTRICULAR BLOCK SECOND DEGREE
     Dosage: NR (NR); PO
     Route: 048
  2. ISOPROTERENOL (NR) (ISOPRENALINE) [Suspect]
     Indication: ATRIOVENTRICULAR BLOCK SECOND DEGREE
     Dosage: NR (NR); PO
     Route: 048
  3. MEXILETINE (MEXILETINE HYDROCHLORIDE) (NR) (MEXILETINE-HCL) [Suspect]
     Indication: ELECTROCARDIOGRAM
     Dosage: 2 MG/KG, 3 HOURS EARLIER (NR); PO
     Route: 048
  4. LIDOCAINE [Suspect]
     Indication: ELECTROCARDIOGRAM
     Dosage: 20 MCG/KG/MIN (NR); IV
     Route: 042

REACTIONS (7)
  - ATRIOVENTRICULAR BLOCK SECOND DEGREE [None]
  - ELECTROCARDIOGRAM ABNORMAL [None]
  - LIPOMATOSIS [None]
  - POST PROCEDURAL COMPLICATION [None]
  - SUDDEN CARDIAC DEATH [None]
  - VENTRICULAR EXTRASYSTOLES [None]
  - VENTRICULAR HYPERTROPHY [None]
